FAERS Safety Report 26192770 (Version 1)
Quarter: 2025Q4

REPORT INFORMATION
  Report Type: Report from Study
  Country: US (occurrence: US)
  Receive Date: 20251223
  Receipt Date: 20251223
  Transmission Date: 20260118
  Serious: Yes (Other)
  Sender: MYLAN
  Company Number: US-MYLANLABS-2025M1108886

PATIENT
  Sex: Male

DRUGS (4)
  1. DILANTIN [Suspect]
     Active Substance: PHENYTOIN
     Indication: Epilepsy
     Dosage: 200 MILLIGRAM, BID (TAKE TWO CAPSULE MORNING AND EVENING)
     Route: 061
  2. DILANTIN [Suspect]
     Active Substance: PHENYTOIN
     Dosage: 200 MILLIGRAM, BID (TAKE TWO CAPSULE MORNING AND EVENING)
     Route: 048
  3. DILANTIN [Suspect]
     Active Substance: PHENYTOIN
     Dosage: 200 MILLIGRAM, BID (TAKE TWO CAPSULE MORNING AND EVENING)
     Route: 048
  4. DILANTIN [Suspect]
     Active Substance: PHENYTOIN
     Dosage: 200 MILLIGRAM, BID (TAKE TWO CAPSULE MORNING AND EVENING)
     Route: 061

REACTIONS (4)
  - Visual impairment [Unknown]
  - Balance disorder [Unknown]
  - Gait disturbance [Unknown]
  - Coordination abnormal [Unknown]
